FAERS Safety Report 9209450 (Version 1)
Quarter: 2013Q1

REPORT INFORMATION
  Report Type: Spontaneous
  Country: US (occurrence: None)
  Receive Date: 20120820
  Receipt Date: 20120820
  Transmission Date: 20140127
  Serious: No
  Sender: FDA-Public Use
  Company Number: 1000030512

PATIENT
  Age: 27 Year
  Sex: Male

DRUGS (1)
  1. VIIBRYD (VILAZODONE) (10 MILLIGRAM, TABLETS) [Suspect]
     Indication: DEPRESSION
     Route: 048
     Dates: start: 201204, end: 201205

REACTIONS (3)
  - Influenza like illness [None]
  - Oedema peripheral [None]
  - Lip swelling [None]
